FAERS Safety Report 7887635 (Version 4)
Quarter: 2012Q4

REPORT INFORMATION
  Report Type: 
  Country: US (occurrence: US)
  Receive Date: 20110406
  Receipt Date: 20120913
  Transmission Date: 20130627
  Serious: Yes (Hospitalization)
  Sender: FDA-Public Use
  Company Number: US-ASTRAZENECA-2010SE42253

PATIENT
  Age: 62 Year
  Sex: Female

DRUGS (69)
  1. TENORMIN [Suspect]
     Route: 065
  2. NEXIUM [Suspect]
     Route: 048
  3. PRILOSEC [Suspect]
     Route: 048
  4. CRESTOR [Suspect]
     Route: 048
  5. AMBESOL [Concomitant]
  6. ALCOHOL [Concomitant]
  7. AMOXICILLIN [Concomitant]
  8. APPLES/APPLE CIDER [Concomitant]
  9. ASCIPTIN [Concomitant]
  10. AUGMENTIN [Concomitant]
  11. AXID [Concomitant]
  12. BETADINE [Concomitant]
  13. CODEINE AND ALL CODEINE DERIVATIVES [Concomitant]
  14. COMPAZINE [Concomitant]
  15. COZAR [Concomitant]
  16. DARVON [Concomitant]
  17. DARVOCET [Concomitant]
  18. DAYPRO [Concomitant]
  19. DEMEROL HCL [Concomitant]
  20. DIOVAN [Concomitant]
  21. DOLOBID [Concomitant]
  22. EYTHROMYCIN BASE [Concomitant]
  23. FEDENE [Concomitant]
  24. HYDROCHLOROTHIAZIDE [Concomitant]
  25. IBUPROFEN AND ALL IB PRODUCTS [Concomitant]
  26. LODINE [Concomitant]
  27. LEVAQUIN [Concomitant]
  28. NITROGLYCERINE [Concomitant]
  29. PENICILLIN [Concomitant]
  30. PEPCID [Concomitant]
  31. PERCOCEL [Concomitant]
  32. PERCODAN [Concomitant]
  33. PROPOLSIDE [Concomitant]
  34. PREVACID [Concomitant]
  35. PROVERA INJECTIONS [Concomitant]
  36. TAGAMENT [Concomitant]
  37. TALWIN [Concomitant]
  38. TORADOL [Concomitant]
  39. ULTHRAM [Concomitant]
  40. VASOTEC [Concomitant]
  41. ALAVERT [Concomitant]
  42. ACIDOPHILUS [Concomitant]
  43. ADVAIR DISKUS [Concomitant]
     Dosage: 100/50 TWO PER DAY
     Route: 055
  44. ADVAIR DISKUS [Concomitant]
     Route: 055
  45. ADVAIR DISKUS [Concomitant]
     Dosage: 100-50 DISKUS, INHALE ONE TIME BY MOUTH TWICE A DAY
     Route: 055
  46. ALBUTEROL [Concomitant]
     Dosage: 0.083 % 2.5 MG, ALWAYS ONE PER DAY
  47. BENADRYL [Concomitant]
  48. CEREBREX [Concomitant]
  49. FLEXERIL [Concomitant]
     Dosage: Q/2 TABLET Q FOUR HOURS NOT EXCEED TO THREE TABLETS PER DAY
  50. LECITHIN [Concomitant]
  51. LEVSIN OIL [Concomitant]
  52. BENTYL [Concomitant]
     Dates: start: 199508
  53. LIDOCAINE HYDROCHLORIDE [Concomitant]
  54. PATANOL [Concomitant]
  55. PROVENTIL [Concomitant]
     Dosage: 90 MICROGRAM INHALER INHALE 2 PUFFS BY MOUTH EVERY 4 HOURS AS NEEDED
  56. TYLENOL [Concomitant]
     Indication: ARTHRITIS
  57. VITAMIN B6 [Concomitant]
  58. VITAMIN B12 [Concomitant]
  59. VITAMIN C [Concomitant]
  60. VITAMIN D [Concomitant]
  61. ZIAC [Concomitant]
  62. ZIAC [Concomitant]
     Dosage: 10-6.25 MG, ONE TABLET ONCE DAILY
     Route: 048
  63. ZIAC [Concomitant]
     Dosage: 2.5-6.25 MG, ONE TABLET ONCE DAILY
     Route: 048
  64. AZITHROMYCIN [Concomitant]
  65. CHLORHEXIDINE [Concomitant]
     Dosage: 0.12 % RINSE, RINSE WITH 15 ML TWICE A DAY
  66. COQ10 [Concomitant]
  67. ACYCLOVIR [Concomitant]
     Route: 048
  68. CHLORDIAZEPOX-CLIDINIUM [Concomitant]
     Route: 048
  69. LEVSIN-SL [Concomitant]
     Indication: PAIN
     Route: 048

REACTIONS (12)
  - Osteonecrosis of jaw [Unknown]
  - Intestinal obstruction [Unknown]
  - Joint injury [Unknown]
  - Gastrooesophageal reflux disease [Unknown]
  - Pain [Unknown]
  - Arthritis [Unknown]
  - Malaise [Unknown]
  - Headache [Unknown]
  - Nausea [Unknown]
  - Muscle spasms [Unknown]
  - Drug dose omission [Unknown]
  - Drug effect decreased [Unknown]
